FAERS Safety Report 5337340-8 (Version None)
Quarter: 2007Q2

REPORT INFORMATION
  Report Type: 
  Country: None (occurrence: None)
  Receive Date: 20070312
  Receipt Date: 20060921
  Transmission Date: 20071010
  Serious: Yes (Life-Threatening, Hospitalization, Disabling, Other)
  Sender: FDA-Public Use
  Company Number: 2006-0010266

PATIENT
  Age: 45 Year
  Sex: Female
  Weight: 135.6255 kg

DRUGS (11)
  1. ATRIPLA [Suspect]
     Indication: HIV INFECTION
     Dosage: 1 DOSAGE FORMS, 1 IN 1 D, ORAL
     Route: 048
     Dates: start: 20060911, end: 20060915
  2. INSULIN (INSULIN) [Concomitant]
  3. BYETTA (EXANTIDE) [Concomitant]
  4. BENAZAPRIL [Concomitant]
  5. NEXIUM (ESOMEPRAZOLE SODIUM) [Concomitant]
  6. ERGOCALCIFEROL (ERGOCALCIFEROL) [Concomitant]
  7. PAXIL [Concomitant]
  8. ZOCOR [Concomitant]
  9. CYMBALTA [Concomitant]
  10. HYDROCHLOROTHIAZIDE [Concomitant]
  11. ACTOS [Concomitant]

REACTIONS (2)
  - AGITATION [None]
  - GRAND MAL CONVULSION [None]
